FAERS Safety Report 19630487 (Version 1)
Quarter: 2021Q3

REPORT INFORMATION
  Report Type: Spontaneous
  Country: ZA (occurrence: ZA)
  Receive Date: 20210729
  Receipt Date: 20210729
  Transmission Date: 20211014
  Serious: Yes (Other)
  Sender: FDA-Public Use
  Company Number: ZA-GLAXOSMITHKLINE-ZA2020068520

PATIENT
  Sex: Male

DRUGS (1)
  1. GRAND?PA HEADACHE POWDERS [Suspect]
     Active Substance: ACETAMINOPHEN\ASPIRIN\CAFFEINE
     Indication: PRODUCT USED FOR UNKNOWN INDICATION
     Dosage: UNK

REACTIONS (5)
  - Product complaint [Unknown]
  - Insomnia [Unknown]
  - Abdominal pain [Unknown]
  - Illness [Unknown]
  - Poisoning [Unknown]
